FAERS Safety Report 18136820 (Version 1)
Quarter: 2020Q3

REPORT INFORMATION
  Report Type: Spontaneous
  Country: SE (occurrence: SE)
  Receive Date: 20200811
  Receipt Date: 20200811
  Transmission Date: 20201103
  Serious: Yes (Disabling, Other)
  Sender: FDA-Public Use
  Company Number: SE-PFIZER INC-2020300025

PATIENT
  Age: 29 Year
  Sex: Female
  Weight: 73 kg

DRUGS (1)
  1. FRAGMIN [Suspect]
     Active Substance: DALTEPARIN SODIUM
     Indication: THROMBOSIS PROPHYLAXIS
     Dosage: UNK
     Dates: start: 20190401, end: 20191214

REACTIONS (2)
  - Spinal compression fracture [Recovering/Resolving]
  - Osteoporosis [Recovering/Resolving]
